FAERS Safety Report 9413531 (Version 1)
Quarter: 2013Q2

REPORT INFORMATION
  Report Type: Spontaneous
  Country: US (occurrence: None)
  Receive Date: 20130416
  Receipt Date: 20130416
  Transmission Date: 20140414
  Serious: Yes (Hospitalization)
  Sender: FDA-Public Use
  Company Number: 36797

PATIENT
  Age: 64 Year
  Sex: Male
  Weight: 92.99 kg

DRUGS (21)
  1. GLASSIA [Suspect]
     Indication: ALPHA-1 ANTI-TRYPSIN DEFICIENCY
     Route: 042
     Dates: start: 20121001
  2. ZYFLO [Concomitant]
  3. TIZANIDINE [Concomitant]
  4. CITALOPRAM [Concomitant]
  5. HYDROMORPHONE [Concomitant]
  6. DIOVAN [Concomitant]
  7. ALLEGRA OR FEXOFENADINE [Concomitant]
  8. PROMETHAZINE [Concomitant]
  9. AMLODIPINE [Concomitant]
  10. GLYBURIDE [Concomitant]
  11. CARVEDILOL [Concomitant]
  12. GABAPENTIN [Concomitant]
  13. OMEPRAZOLE [Concomitant]
  14. NAPROXEN OTC [Concomitant]
  15. XOPENEX [Concomitant]
  16. ALBUTEROL [Concomitant]
  17. ASPIRIN [Concomitant]
  18. MARINOL [Concomitant]
  19. XOLAIR [Concomitant]
  20. LUNESTA [Concomitant]
  21. LYRICA AND ALLERGY INJECTIONS [Concomitant]

REACTIONS (9)
  - Fatigue [None]
  - Blood pressure increased [None]
  - Leukocytosis [None]
  - Lobar pneumonia [None]
  - Oxygen saturation decreased [None]
  - Musculoskeletal pain [None]
  - Feeling abnormal [None]
  - Drug administration error [None]
  - Pleuritic pain [None]
